FAERS Safety Report 6445979-1 (Version None)
Quarter: 2009Q4

REPORT INFORMATION
  Report Type: 
  Country: None (occurrence: None)
  Receive Date: 20091119
  Receipt Date: 20090504
  Transmission Date: 20100525
  Serious: No
  Sender: FDA-Public Use
  Company Number: A0783914A

PATIENT

DRUGS (3)
  1. WELLBUTRIN SR [Suspect]
     Indication: GROWTH HORMONE DEFICIENCY
     Dosage: 150MG TWICE PER DAY
     Route: 048
  2. WELLBUTRIN XL [Suspect]
     Indication: GROWTH HORMONE DEFICIENCY
     Dosage: 150MG TWICE PER DAY
     Route: 048
  3. BUPROPION HYDROCHLORIDE [Suspect]
     Indication: GROWTH HORMONE DEFICIENCY
     Dosage: 150MG TWICE PER DAY
     Route: 048

REACTIONS (2)
  - CRYING [None]
  - TREMOR [None]
